FAERS Safety Report 11222632 (Version 1)
Quarter: 2015Q2

REPORT INFORMATION
  Report Type: Spontaneous
  Country: AU (occurrence: AU)
  Receive Date: 20150626
  Receipt Date: 20150626
  Transmission Date: 20150821
  Serious: Yes (Other)
  Sender: FDA-Public Use
  Company Number: AU-CIPLA LTD.-2015AU05032

PATIENT

DRUGS (8)
  1. FLUOROURACIL. [Suspect]
     Active Substance: FLUOROURACIL
     Indication: HEPATIC NEOPLASM
  2. FOLINIC ACID [Suspect]
     Active Substance: LEUCOVORIN
     Indication: COLORECTAL CANCER METASTATIC
     Dosage: UNK
     Route: 065
  3. FLUOROURACIL. [Suspect]
     Active Substance: FLUOROURACIL
     Indication: COLORECTAL CANCER METASTATIC
     Dosage: UNK
     Route: 065
  4. OXALIPLATIN. [Suspect]
     Active Substance: OXALIPLATIN
     Indication: COLORECTAL CANCER METASTATIC
     Dosage: UNK
     Route: 065
  5. OXALIPLATIN. [Suspect]
     Active Substance: OXALIPLATIN
     Indication: HEPATIC NEOPLASM
  6. IRINOTECAN [Suspect]
     Active Substance: IRINOTECAN
     Indication: HEPATIC NEOPLASM
  7. IRINOTECAN [Suspect]
     Active Substance: IRINOTECAN
     Indication: COLORECTAL CANCER METASTATIC
     Dosage: UNK
     Route: 065
  8. FOLINIC ACID [Suspect]
     Active Substance: LEUCOVORIN
     Indication: HEPATIC NEOPLASM

REACTIONS (2)
  - Foetal death [Fatal]
  - Exposure during pregnancy [Unknown]
